FAERS Safety Report 13352357 (Version 1)
Quarter: 2017Q1

REPORT INFORMATION
  Report Type: Report from Study
  Country: IT (occurrence: IT)
  Receive Date: 20170320
  Receipt Date: 20170320
  Transmission Date: 20170429
  Serious: Yes (Death)
  Sender: FDA-Public Use
  Company Number: IT-PFIZER INC-2017113233

PATIENT

DRUGS (17)
  1. DEXAMETHASONE SODIUM PHOSPHATE. [Suspect]
     Active Substance: DEXAMETHASONE SODIUM PHOSPHATE
     Indication: NON-HODGKIN^S LYMPHOMA
     Dosage: 5 MG/M2, (DAY 1 AND 2)
  2. CYCLOPHOSPHAMIDE. [Suspect]
     Active Substance: CYCLOPHOSPHAMIDE
     Indication: NON-HODGKIN^S LYMPHOMA
     Dosage: 200 MG/M2, DAILY, (DAY 1, 2)
     Route: 042
  3. CYTARABINE. [Suspect]
     Active Substance: CYTARABINE
     Dosage: 30 MG, CYCLIC (DAY 1)
     Route: 037
  4. METHOTREXATE. [Suspect]
     Active Substance: METHOTREXATE
     Indication: NON-HODGKIN^S LYMPHOMA
     Dosage: 12 MG, (DAY 1)
     Route: 037
  5. DEXAMETHASONE SODIUM PHOSPHATE. [Suspect]
     Active Substance: DEXAMETHASONE SODIUM PHOSPHATE
     Dosage: 10 MG/M2, CYCLIC (DAY 1-5)
  6. PREDNISOLONE. [Suspect]
     Active Substance: PREDNISOLONE
     Indication: NON-HODGKIN^S LYMPHOMA
     Dosage: 10 MG, (DAY 1)
     Route: 037
  7. PREDNISOLONE. [Suspect]
     Active Substance: PREDNISOLONE
     Dosage: 10 MG, CYCLIC (DAY 1)
     Route: 037
  8. CYTARABINE. [Suspect]
     Active Substance: CYTARABINE
     Indication: NON-HODGKIN^S LYMPHOMA
     Dosage: 30 MG, (DAY 1)
     Route: 037
  9. METHOTREXATE. [Suspect]
     Active Substance: METHOTREXATE
     Dosage: UNK, CYCLIC (DAY 1)
     Route: 042
  10. METHOTREXATE. [Suspect]
     Active Substance: METHOTREXATE
     Dosage: 12 MG, CYCLIC (DAY 1)
     Route: 037
  11. ETOPOSIDE. [Suspect]
     Active Substance: ETOPOSIDE
     Indication: NON-HODGKIN^S LYMPHOMA
     Dosage: 100 MG/M2, (DAY 4-5)
     Route: 042
  12. VINCRISTINE SULFATE. [Suspect]
     Active Substance: VINCRISTINE SULFATE
     Indication: NON-HODGKIN^S LYMPHOMA
     Dosage: 1.5 MG/M2, (DAY 1)
     Route: 042
  13. DOXORUBICIN HCL [Suspect]
     Active Substance: DOXORUBICIN HYDROCHLORIDE
     Indication: NON-HODGKIN^S LYMPHOMA
     Dosage: 25 MG/M2, CYCLE (DAY 4-5)
     Route: 042
  14. CYTARABINE. [Suspect]
     Active Substance: CYTARABINE
     Dosage: 150 MG/M2, 2X/DAY (DAY 4-5)
     Route: 042
  15. DEXAMETHASONE SODIUM PHOSPHATE. [Suspect]
     Active Substance: DEXAMETHASONE SODIUM PHOSPHATE
     Dosage: 10 MG/M2, (DAY 3, 4, 5)
  16. IFOSFAMIDE. [Suspect]
     Active Substance: IFOSFAMIDE
     Indication: NON-HODGKIN^S LYMPHOMA
     Dosage: 800 MG/M2, (DAY 1-5)
     Route: 042
  17. CYCLOPHOSPHAMIDE. [Suspect]
     Active Substance: CYCLOPHOSPHAMIDE
     Dosage: 200 MG/M2, CYCLIC (DAY 1-5)

REACTIONS (1)
  - Gastrointestinal haemorrhage [Fatal]
